FAERS Safety Report 14412876 (Version 1)
Quarter: 2018Q1

REPORT INFORMATION
  Report Type: Other
  Country: FR (occurrence: FR)
  Receive Date: 20180119
  Receipt Date: 20180119
  Transmission Date: 20180509
  Serious: Yes (Hospitalization, Other)
  Sender: FDA-Public Use
  Company Number: FR-RARE DISEASE THERAPEUTICS, INC.-2040388

PATIENT
  Age: 4 Year
  Sex: Male

DRUGS (14)
  1. PURIXAN [Suspect]
     Active Substance: MERCAPTOPURINE
     Indication: ACUTE LYMPHOCYTIC LEUKAEMIA
     Route: 048
     Dates: start: 20170811
  2. PEGASPARGASE [Suspect]
     Active Substance: PEGASPARGASE
     Route: 042
     Dates: start: 20170526
  3. ROCEPHINE [Concomitant]
     Active Substance: CEFTRIAXONE SODIUM
  4. AMIKLIN [Concomitant]
     Active Substance: AMIKACIN SULFATE
  5. CEFTRIAXONE. [Concomitant]
     Active Substance: CEFTRIAXONE
  6. PERFALGAN [Concomitant]
     Active Substance: ACETAMINOPHEN
  7. PARACETAMOL [Concomitant]
     Active Substance: ACETAMINOPHEN
  8. METHOTREXATE. [Suspect]
     Active Substance: METHOTREXATE
     Route: 037
     Dates: start: 20170823
  9. FORTUM [Concomitant]
     Active Substance: CEFTAZIDIME
  10. METHOTREXATE. [Suspect]
     Active Substance: METHOTREXATE
     Route: 042
     Dates: start: 20170822
  11. DUPHALAC [Concomitant]
     Active Substance: LACTULOSE
  12. ONDANSETRON [Concomitant]
     Active Substance: ONDANSETRON
  13. MONTELUKAST [Concomitant]
     Active Substance: MONTELUKAST SODIUM
  14. SERETIDE [Concomitant]
     Active Substance: FLUTICASONE PROPIONATE\SALMETEROL XINAFOATE

REACTIONS (1)
  - Pseudomonal sepsis [Recovered/Resolved]

NARRATIVE: CASE EVENT DATE: 20170905
